FAERS Safety Report 9523199 (Version 2)
Quarter: 2013Q4

REPORT INFORMATION
  Report Type: Spontaneous
  Country: JP (occurrence: JP)
  Receive Date: 20130913
  Receipt Date: 20131011
  Transmission Date: 20140711
  Serious: Yes (Life-Threatening)
  Sender: FDA-Public Use
  Company Number: JP-GLAXOSMITHKLINE-B0922320A

PATIENT
  Age: 66 Year
  Sex: Female
  Weight: 49 kg

DRUGS (4)
  1. VALTREX [Suspect]
     Indication: VIITH NERVE PARALYSIS
     Route: 048
     Dates: start: 20120409, end: 20120420
  2. TAKEPRON [Suspect]
     Indication: PRODUCT USED FOR UNKNOWN INDICATION
     Route: 065
  3. PREDONINE [Concomitant]
     Route: 065
  4. METHYCOBAL [Concomitant]
     Route: 065

REACTIONS (12)
  - Oculomucocutaneous syndrome [Recovered/Resolved]
  - Erythema multiforme [Unknown]
  - Mouth ulceration [Unknown]
  - Pyrexia [Unknown]
  - Conjunctival hyperaemia [Unknown]
  - Oral mucosa erosion [Unknown]
  - Erythema [Unknown]
  - Lip erosion [Unknown]
  - Tongue coated [Unknown]
  - Hypoproteinaemia [Unknown]
  - Hypoalbuminaemia [Unknown]
  - Lymphocytic infiltration [Unknown]
